FAERS Safety Report 5268968-1 (Version None)
Quarter: 2007Q1

REPORT INFORMATION
  Report Type: 
  Country: None (occurrence: None)
  Receive Date: 20061214
  Receipt Date: 20060815
  Transmission Date: 20070707
  Serious: Yes (Other)
  Sender: FDA-Public Use
  Company Number: 2006099694

PATIENT
  Sex: Female

DRUGS (4)
  1. XANAX [Suspect]
     Indication: DRUG USE FOR UNKNOWN INDICATION
  2. AMBIEN [Suspect]
     Indication: DRUG USE FOR UNKNOWN INDICATION
  3. RESTORIL [Suspect]
     Indication: DRUG USE FOR UNKNOWN INDICATION
  4. DALMANE [Suspect]
     Indication: DRUG USE FOR UNKNOWN INDICATION

REACTIONS (4)
  - AMNESIA [None]
  - DEPRESSION [None]
  - FALL [None]
  - SOMNOLENCE [None]
